FAERS Safety Report 4600150-0 (Version None)
Quarter: 2005Q1

REPORT INFORMATION
  Report Type: 
  Country: None (occurrence: None)
  Receive Date: 20050303
  Receipt Date: 20050224
  Transmission Date: 20050727
  Serious: Yes (Death)
  Sender: FDA-Public Use
  Company Number: 212702

PATIENT
  Age: 78 Year
  Sex: Male

DRUGS (4)
  1. ACTILYSE (ALTEPLASE) PWDR + SOLVENT, INFUSION SOLN [Suspect]
     Dosage: 100 MG, SINGLE, INTRAVENOUS
     Route: 042
     Dates: start: 20010126, end: 20010126
  2. HEPARIN CALCIUM [Concomitant]
  3. SALICYLIC ACID (SALICYLIC ACID) [Concomitant]
  4. OMEPRAZOLE [Concomitant]

REACTIONS (4)
  - CARDIAC ARREST [None]
  - ELECTROMECHANICAL DISSOCIATION [None]
  - PUNCTURE SITE HAEMORRHAGE [None]
  - URETHRAL HAEMORRHAGE [None]
